FAERS Safety Report 10771623 (Version 7)
Quarter: 2015Q3

REPORT INFORMATION
  Report Type: Spontaneous
  Country: US (occurrence: US)
  Receive Date: 20150206
  Receipt Date: 20150713
  Transmission Date: 20151125
  Serious: Yes (Hospitalization, Congenital Anomaly, Other)
  Sender: FDA-Public Use
  Company Number: US-APOTEX-2015AP006330

PATIENT

DRUGS (8)
  1. BRETHINE [Concomitant]
     Active Substance: TERBUTALINE SULFATE
     Indication: PRODUCT USED FOR UNKNOWN INDICATION
     Dosage: UNK UNK, PRN
     Route: 064
     Dates: end: 2005
  2. AMBIEN [Concomitant]
     Active Substance: ZOLPIDEM TARTRATE
     Indication: PRODUCT USED FOR UNKNOWN INDICATION
     Dosage: UNK UNK, PRN
     Route: 064
     Dates: end: 2005
  3. PAXIL [Suspect]
     Active Substance: PAROXETINE HYDROCHLORIDE
     Indication: ANXIETY
  4. PAXIL CR [Suspect]
     Active Substance: PAROXETINE HYDROCHLORIDE
     Indication: ANXIETY
     Dosage: 37.5 MG, DAILY
     Route: 064
  5. PAXIL [Suspect]
     Active Substance: PAROXETINE HYDROCHLORIDE
     Indication: DEPRESSION
     Dosage: 40 MG, DAILY
     Route: 064
  6. PAXIL CR [Suspect]
     Active Substance: PAROXETINE HYDROCHLORIDE
     Indication: DEPRESSION
     Dosage: 25 MG, DAILY
     Route: 064
  7. PRENATAL VITAMINS                  /07426201/ [Concomitant]
     Active Substance: ASCORBIC ACID\BIOTIN\MINERALS\NIACIN\RETINOL\TOCOPHEROL\VITAMIN B\VITAMIN D
     Indication: PRODUCT USED FOR UNKNOWN INDICATION
     Dosage: UNK
     Route: 064
     Dates: start: 2004, end: 2005
  8. PHENERGAN [Concomitant]
     Active Substance: PROMETHAZINE HYDROCHLORIDE
     Indication: PRODUCT USED FOR UNKNOWN INDICATION
     Dosage: UNK UNK, PRN
     Route: 064
     Dates: end: 2005

REACTIONS (28)
  - Ankyloglossia congenital [Unknown]
  - Immune system disorder [Unknown]
  - Speech disorder [Unknown]
  - Developmental delay [Unknown]
  - Nail dystrophy [Unknown]
  - Pneumonia [Unknown]
  - Nervous system disorder [Unknown]
  - Autism [Unknown]
  - Kidney malformation [Unknown]
  - Dysmorphism [Unknown]
  - Optic nerve disorder [Unknown]
  - Deafness [Unknown]
  - Respiratory distress [Unknown]
  - Precocious puberty [Unknown]
  - Feeding disorder of infancy or early childhood [Unknown]
  - Cytogenetic abnormality [Unknown]
  - Atrial septal defect [Unknown]
  - Seizure [Unknown]
  - Dwarfism [Unknown]
  - Benign congenital hypotonia [Unknown]
  - Cardiomyopathy neonatal [Unknown]
  - Cleft palate [Unknown]
  - Talipes [Unknown]
  - Limb hypoplasia congenital [Unknown]
  - Pericardial effusion [Unknown]
  - Foetal exposure during pregnancy [Unknown]
  - Congenital central nervous system anomaly [Unknown]
  - Developmental hip dysplasia [Unknown]

NARRATIVE: CASE EVENT DATE: 20050405
